FAERS Safety Report 6732123-6 (Version None)
Quarter: 2010Q2

REPORT INFORMATION
  Report Type: 
  Country: None (occurrence: None)
  Receive Date: 20100519
  Receipt Date: 20100517
  Transmission Date: 20101027
  Serious: Yes (Death, Hospitalization)
  Sender: FDA-Public Use
  Company Number: PHEH2010US03377

PATIENT
  Sex: Male
  Weight: 74.43 kg

DRUGS (19)
  1. EXJADE [Suspect]
     Indication: LABORATORY TEST ABNORMAL
     Dosage: 1000 MG/ DAY
     Route: 048
     Dates: start: 20091106
  2. FLOMAX [Concomitant]
  3. ACETAMINOPHEN AND HYDROCODONE BITARTRATE [Concomitant]
  4. SERTRALINE HCL [Concomitant]
  5. ATENOLOL [Concomitant]
  6. MULTIVITAMIN ^LAPPE^ [Concomitant]
  7. ACYCLOVIR [Concomitant]
  8. VITAMIN B-12 [Concomitant]
  9. FINASTERIDE [Concomitant]
  10. LASIX [Concomitant]
  11. VITAMIN D [Concomitant]
  12. ANDROGEL [Concomitant]
  13. LEVAQUIN [Concomitant]
  14. SPIRIVA [Concomitant]
  15. RANITIDINE [Concomitant]
  16. ROPINIROLE [Concomitant]
  17. AMOXICILLIN [Concomitant]
  18. DIGOXIN [Concomitant]
  19. PREDNISONE [Concomitant]

REACTIONS (2)
  - DEATH [None]
  - INFECTION [None]
